FAERS Safety Report 17487555 (Version 3)
Quarter: 2020Q2

REPORT INFORMATION
  Report Type: Spontaneous
  Country: US (occurrence: US)
  Receive Date: 20200303
  Receipt Date: 20200428
  Transmission Date: 20200713
  Serious: Yes (Other)
  Sender: FDA-Public Use
  Company Number: US-PFIZER INC-2019478375

PATIENT
  Age: 71 Year
  Sex: Female
  Weight: 65.77 kg

DRUGS (4)
  1. RETACRIT [Suspect]
     Active Substance: EPOETIN ALFA-EPBX
     Dosage: 40000 IU/ML, EVERY 2 WEEKS
     Route: 058
     Dates: start: 20200326
  2. ATORVASTATIN [Concomitant]
     Active Substance: ATORVASTATIN
     Indication: BLOOD CHOLESTEROL ABNORMAL
     Dosage: 20 MG, 1X/DAY
  3. RETACRIT [Suspect]
     Active Substance: EPOETIN ALFA-EPBX
     Indication: ANAEMIA
     Dosage: 40000 IU/ML, EVERY 2 WEEKS
     Route: 058
     Dates: start: 20180426
  4. RETACRIT [Suspect]
     Active Substance: EPOETIN ALFA-EPBX
     Dosage: 40000 IU/ML, EVERY 2 WEEKS
     Route: 058
     Dates: start: 20200312

REACTIONS (5)
  - Renal disorder [Recovering/Resolving]
  - Off label use [Unknown]
  - Vasculitis [Recovering/Resolving]
  - Body height decreased [Unknown]
  - Blood disorder [Unknown]
